FAERS Safety Report 24041533 (Version 1)
Quarter: 2024Q3

REPORT INFORMATION
  Report Type: Spontaneous
  Country: US (occurrence: US)
  Receive Date: 20240702
  Receipt Date: 20240702
  Transmission Date: 20241017
  Serious: No
  Sender: SAREPTA THERAPEUTICS
  Company Number: US-SAREPTA THERAPEUTICS INC.-SRP2023-003908

PATIENT
  Age: 10 Year
  Sex: Male
  Weight: 24.04 kg

DRUGS (12)
  1. EXONDYS 51 [Suspect]
     Active Substance: ETEPLIRSEN
     Indication: Duchenne muscular dystrophy
     Dosage: 700 MILLIGRAM, WEEKLY
     Route: 042
     Dates: start: 20190614, end: 20231003
  2. EXONDYS 51 [Suspect]
     Active Substance: ETEPLIRSEN
     Dosage: 700 MILLIGRAM, WEEKLY
     Route: 042
     Dates: start: 20231018
  3. FLOVENT HFA [Concomitant]
     Active Substance: FLUTICASONE PROPIONATE
     Indication: Product used for unknown indication
     Dosage: 110 MICROGRAM/PUFF INH 2 PUFFS, BID W/ SPACER
  4. ZYRTEC [Concomitant]
     Active Substance: CETIRIZINE HYDROCHLORIDE
     Indication: Hypersensitivity
     Dosage: 5 MILLIGRAM, QD, PRN
     Route: 048
  5. BACTROBAN [Concomitant]
     Active Substance: MUPIROCIN CALCIUM
     Indication: Nasal dryness
     Dosage: 2 PERCENT OINMENT TOPICALLY TO EACH SIDE OF NOSE, TID, PRN
     Route: 061
  6. BACTROBAN [Concomitant]
     Active Substance: MUPIROCIN CALCIUM
     Indication: Epistaxis
  7. EMFLAZA [Concomitant]
     Active Substance: DEFLAZACORT
     Indication: Product used for unknown indication
     Dosage: UNK, QD, 22.75MG/ML SUSP 1 ML
     Route: 048
  8. LISINOPRIL [Concomitant]
     Active Substance: LISINOPRIL
     Indication: Product used for unknown indication
     Dosage: 2.5 MILLIGRAM, QD
     Route: 048
  9. ZOFRAN [Concomitant]
     Active Substance: ONDANSETRON HYDROCHLORIDE
     Indication: Product used for unknown indication
     Dosage: 2 MILLIGRAM
     Route: 048
  10. ALBUTEROL [Concomitant]
     Active Substance: ALBUTEROL
     Indication: Product used for unknown indication
     Dosage: 2.5MG/3ML, 3 ML BY NEBULIZER, PRN
  11. ALBUTEROL SULFATE [Concomitant]
     Active Substance: ALBUTEROL SULFATE
     Indication: Wheezing
     Dosage: 90 MICROGRAM, 2-4 PUFFS Q4HR, PRN
  12. VITAMINS [Concomitant]
     Active Substance: VITAMINS
     Indication: Product used for unknown indication
     Dosage: UNK, QD
     Route: 048

REACTIONS (2)
  - Intentional dose omission [Unknown]
  - No adverse event [Unknown]

NARRATIVE: CASE EVENT DATE: 20231010
